FAERS Safety Report 8583425-2 (Version None)
Quarter: 2012Q3

REPORT INFORMATION
  Report Type: 
  Country: None (occurrence: None)
  Receive Date: 20120809
  Receipt Date: 20120619
  Transmission Date: 20120928
  Serious: Yes (Life-Threatening, Other)
  Sender: FDA-Public Use
  Company Number: CHPA2012US013342

PATIENT
  Sex: Female

DRUGS (1)
  1. EXCEDRIN EXTRA STRENGTH TABLETS [Suspect]
     Dosage: UNK, UNK
     Route: 048
     Dates: end: 19980101

REACTIONS (6)
  - INTENTIONAL OVERDOSE [None]
  - ERYTHEMA [None]
  - POST-TRAUMATIC STRESS DISORDER [None]
  - INCORRECT DOSE ADMINISTERED [None]
  - JOINT INJURY [None]
  - LIMB DISCOMFORT [None]
